FAERS Safety Report 8900661 (Version 2)
Quarter: 2012Q4

REPORT INFORMATION
  Report Type: 
  Country: US (occurrence: US)
  Receive Date: 20121109
  Receipt Date: 20121128
  Transmission Date: 20130627
  Serious: Yes (Other)
  Sender: FDA-Public Use
  Company Number: US-BAYER-2012-115898

PATIENT
  Age: 81 Year
  Sex: Male
  Weight: 73.48 kg

DRUGS (13)
  1. XARELTO [Suspect]
     Indication: CEREBROVASCULAR ACCIDENT PROPHYLAXIS
     Dosage: 20 mg, QD
     Route: 048
     Dates: start: 20121025, end: 20121030
  2. XARELTO [Interacting]
     Indication: ATRIAL FIBRILLATION
  3. ACETYLSALICYLIC ACID({=100 MG) [Interacting]
     Indication: ANTICOAGULANT THERAPY
     Dosage: 81 mg, QD
     Route: 048
     Dates: start: 2002
  4. TOPROL XL [Concomitant]
     Indication: CONGESTIVE HEART FAILURE
     Dosage: 25 mg, QD
     Route: 048
     Dates: start: 2002
  5. TOPROL XL [Concomitant]
     Indication: CONGESTIVE HEART FAILURE
  6. OMEPRAZOLE [Concomitant]
     Indication: GERD
     Dosage: 40 mg, QD
     Route: 048
     Dates: start: 2012
  7. OMEPRAZOLE [Concomitant]
     Indication: GERD
  8. MULTIVITAMINS [Concomitant]
     Indication: NUTRITIONAL SUPPORT
     Route: 048
  9. MULTIVITAMINS [Concomitant]
     Indication: NUTRITIONAL SUPPORT
  10. FISH OIL [Concomitant]
  11. LIPITOR [Concomitant]
     Indication: HYPERCHOLESTEROLEMIA
     Dosage: 10 mg, QD
     Route: 048
     Dates: start: 2002
  12. COZAAR [Concomitant]
     Indication: BLOOD PRESSURE ABNORMAL
     Dosage: 50 mg, QD
     Route: 048
     Dates: start: 2002
  13. CALTRATE WITH VITAMIN D [Concomitant]
     Indication: CALCIUM SUPPLEMENTATION
     Dosage: 600 mg, QD
     Route: 048
     Dates: start: 2008

REACTIONS (1)
  - Haematochezia [Recovered/Resolved]
